FAERS Safety Report 9333458 (Version 5)
Quarter: 2013Q3

REPORT INFORMATION
  Report Type: Spontaneous
  Country: US (occurrence: None)
  Receive Date: 20130604
  Receipt Date: 20130731
  Transmission Date: 20140515
  Serious: Yes (Other)
  Sender: FDA-Public Use
  Company Number: ACO_36457_2013

PATIENT
  Age: 68 Year
  Sex: Female
  Weight: 70.3 kg

DRUGS (9)
  1. AMPYRA (DALFAMPRIDINE) TABLET, 10 MG [Suspect]
     Indication: MULTIPLE SCLEROSIS
     Route: 048
     Dates: start: 2010
  2. AMPYRA (DALFAMPRIDINE) TABLET, 10 MG [Suspect]
     Indication: GAIT DISTURBANCE
     Route: 048
     Dates: start: 2010
  3. COUMADIN (WARFARIN SODIUM) [Suspect]
     Indication: PRODUCT USED FOR UNKNOWN INDICATION
  4. METFORMIN ER (METFORMIN HYDROCHLORIDE) [Concomitant]
  5. METOPROLOL (METOPROLOL TARTRATE) [Concomitant]
  6. GLIPIZIDE (GLIPIZIDE) [Concomitant]
  7. PREVACID (LANSOPRAZOLE) [Concomitant]
  8. CALCIUM (CALCIUM) [Concomitant]
  9. AMILORIDE HCL (AMILORIDE HYDROCHLORIDE) [Concomitant]

REACTIONS (10)
  - Lower limb fracture [None]
  - Fall [None]
  - Fatigue [None]
  - Drug interaction [None]
  - Dizziness [None]
  - Dysarthria [None]
  - Aphonia [None]
  - Oropharyngeal pain [None]
  - Therapeutic response unexpected [None]
  - Fatigue [None]
